FAERS Safety Report 7634439-8 (Version None)
Quarter: 2011Q3

REPORT INFORMATION
  Report Type: 
  Country: None (occurrence: None)
  Receive Date: 20110725
  Receipt Date: 20110713
  Transmission Date: 20111222
  Serious: Yes (Other)
  Sender: FDA-Public Use
  Company Number: PHHY2011US62862

PATIENT
  Sex: Male

DRUGS (1)
  1. STALEVO 100 [Suspect]
     Route: 048

REACTIONS (4)
  - MOVEMENT DISORDER [None]
  - SPEECH DISORDER [None]
  - DROOLING [None]
  - COMA [None]
